FAERS Safety Report 6470708-5 (Version None)
Quarter: 2009Q4

REPORT INFORMATION
  Report Type: 
  Country: None (occurrence: None)
  Receive Date: 20091203
  Receipt Date: 20091125
  Transmission Date: 20100525
  Serious: Yes (Hospitalization)
  Sender: FDA-Public Use
  Company Number: A0832017A

PATIENT
  Age: 51 Year
  Sex: Female

DRUGS (12)
  1. TYKERB [Suspect]
     Indication: BREAST CANCER
     Dosage: 1250MG PER DAY
     Route: 048
     Dates: start: 20091030
  2. COUMADIN [Concomitant]
  3. ACCOLATE [Concomitant]
  4. NORVASC [Concomitant]
  5. MULTI-VITAMIN [Concomitant]
  6. LOVASTATIN [Concomitant]
  7. BUSPIRONE HCL [Concomitant]
  8. ISOSORBIDE [Concomitant]
  9. VITAMIN B-12 [Concomitant]
  10. VITAMIN B6 [Concomitant]
  11. XELODA [Concomitant]
  12. HERCEPTIN [Concomitant]

REACTIONS (8)
  - BREAST INFECTION [None]
  - BREAST SWELLING [None]
  - CELLULITIS [None]
  - ERYTHEMA [None]
  - PRURITUS [None]
  - RASH ERYTHEMATOUS [None]
  - SKIN DISORDER [None]
  - SKIN LACERATION [None]
